FAERS Safety Report 15011419 (Version 1)
Quarter: 2018Q2

REPORT INFORMATION
  Report Type: Spontaneous
  Country: SE (occurrence: SE)
  Receive Date: 20180614
  Receipt Date: 20180614
  Transmission Date: 20180711
  Serious: Yes (Death, Other)
  Sender: FDA-Public Use
  Company Number: SE-APOTEX-2018AP015854

PATIENT
  Age: 60 Year
  Sex: Female

DRUGS (5)
  1. LITHIUM. [Suspect]
     Active Substance: LITHIUM
     Indication: PRODUCT USED FOR UNKNOWN INDICATION
     Route: 065
  2. LEVOMEPROMAZIN                     /00038601/ [Suspect]
     Active Substance: LEVOMEPROMAZINE
     Indication: PRODUCT USED FOR UNKNOWN INDICATION
     Route: 065
  3. ALCOHOL. [Suspect]
     Active Substance: ALCOHOL
     Indication: PRODUCT USED FOR UNKNOWN INDICATION
     Route: 065
  4. CITALOPRAM [Suspect]
     Active Substance: CITALOPRAM HYDROBROMIDE
     Indication: PRODUCT USED FOR UNKNOWN INDICATION
     Dosage: UNK
     Route: 065
  5. PERPHENAZINE. [Suspect]
     Active Substance: PERPHENAZINE
     Indication: PRODUCT USED FOR UNKNOWN INDICATION
     Route: 065

REACTIONS (7)
  - Pulmonary oedema [Fatal]
  - Thyroid cancer [Fatal]
  - Cardiomegaly [Fatal]
  - Arteriosclerosis [Fatal]
  - Pulmonary congestion [Fatal]
  - Toxicity to various agents [Fatal]
  - Circulatory collapse [Fatal]
